FAERS Safety Report 7953266-5 (Version None)
Quarter: 2011Q4

REPORT INFORMATION
  Report Type: 
  Country: None (occurrence: None)
  Receive Date: 20111201
  Receipt Date: 20111116
  Transmission Date: 20120403
  Serious: Yes (Other)
  Sender: FDA-Public Use
  Company Number: PL-ROCHE-1014141

PATIENT
  Age: 61 Year
  Sex: Male

DRUGS (1)
  1. CAPECITABINE [Suspect]
     Indication: PRODUCT USED FOR UNKNOWN INDICATION

REACTIONS (9)
  - HEPATIC MASS [None]
  - DIARRHOEA [None]
  - LEUKOPENIA [None]
  - MUCOSAL INFLAMMATION [None]
  - ASCITES [None]
  - ANAEMIA [None]
  - ABDOMINAL PAIN [None]
  - NAUSEA [None]
  - GENERAL PHYSICAL HEALTH DETERIORATION [None]
